FAERS Safety Report 11884414 (Version 4)
Quarter: 2016Q2

REPORT INFORMATION
  Report Type: Report from Study
  Country: BR (occurrence: BR)
  Receive Date: 20160103
  Receipt Date: 20160615
  Transmission Date: 20160815
  Serious: Yes (Other)
  Sender: FDA-Public Use
  Company Number: BR-ROCHE-1465724

PATIENT
  Age: 53 Year
  Sex: Female
  Weight: 87 kg

DRUGS (11)
  1. ESCITALOPRAM [Concomitant]
     Active Substance: ESCITALOPRAM OXALATE
  2. OLMETEC [Concomitant]
     Active Substance: OLMESARTAN MEDOXOMIL
  3. CITALOPRAM [Concomitant]
     Active Substance: CITALOPRAM HYDROBROMIDE
  4. PHENERGAN [Concomitant]
     Active Substance: PROMETHAZINE HYDROCHLORIDE
     Indication: ANTIALLERGIC THERAPY
  5. BOLDO LEAF [Concomitant]
     Active Substance: PEUMUS BOLDUS LEAF
  6. PLANTAGO MAJOR [Concomitant]
     Active Substance: PLANTAGO MAJOR
  7. REUQUINOL [Concomitant]
     Active Substance: HYDROXYCHLOROQUINE SULFATE
  8. MABTHERA [Suspect]
     Active Substance: RITUXIMAB
     Indication: RHEUMATOID ARTHRITIS
     Dosage: LAST INFUSION: 23-DEC-2015
     Route: 042
     Dates: start: 20130301
  9. MULUNGU [Concomitant]
  10. VELIJA [Concomitant]
     Active Substance: DULOXETINE HYDROCHLORIDE
  11. TYLENOL [Concomitant]
     Active Substance: ACETAMINOPHEN

REACTIONS (9)
  - Fatigue [Unknown]
  - General physical health deterioration [Recovered/Resolved]
  - Eye irritation [Recovered/Resolved]
  - Somnolence [Recovered/Resolved]
  - Muscular weakness [Recovered/Resolved]
  - Swelling [Recovering/Resolving]
  - Arthralgia [Recovering/Resolving]
  - Headache [Recovered/Resolved]
  - Asthenia [Recovered/Resolved]

NARRATIVE: CASE EVENT DATE: 20151224
